FAERS Safety Report 6935862-7 (Version None)
Quarter: 2010Q3

REPORT INFORMATION
  Report Type: 
  Country: None (occurrence: None)
  Receive Date: 20100819
  Receipt Date: 20100819
  Transmission Date: 20110219
  Serious: Yes (Life-Threatening, Hospitalization)
  Sender: FDA-Public Use
  Company Number: None

PATIENT
  Sex: Male
  Weight: 65.5 kg

DRUGS (14)
  1. ACYCLOVIR [Suspect]
     Indication: HERPES ZOSTER
     Dosage: 800 MG 1 Q 4HRS X 10 DAYS ORAL
     Route: 048
     Dates: start: 20100708, end: 20100710
  2. PREDNISONE [Suspect]
     Dosage: 50 MG 1 DAILY X 7 DAYS ORAL
     Route: 048
     Dates: start: 20100708, end: 20100710
  3. AMIODARONE HCL [Concomitant]
  4. CARVEDILOL [Concomitant]
  5. TAMSULOSIN HCL [Concomitant]
  6. ACETAMINOPHEN AND HYDROCODONE BITARTRATE [Concomitant]
  7. LOSARTAN POTASSIUM [Concomitant]
  8. PREDNISONE [Concomitant]
  9. LRVOTHYROXINE [Concomitant]
  10. ZYLOPRIM [Concomitant]
  11. ASPIRIN [Concomitant]
  12. MULTI-VITAMIN [Concomitant]
  13. ACETAMINOPHEN [Concomitant]
  14. VITAMIN D [Concomitant]

REACTIONS (6)
  - CONFUSIONAL STATE [None]
  - DISORIENTATION [None]
  - DRUG PRESCRIBING ERROR [None]
  - DYSKINESIA [None]
  - HALLUCINATION [None]
  - MENTAL STATUS CHANGES [None]
